FAERS Safety Report 5694318-2 (Version None)
Quarter: 2008Q2

REPORT INFORMATION
  Report Type: 
  Country: None (occurrence: None)
  Receive Date: 20080404
  Receipt Date: 20080331
  Transmission Date: 20081010
  Serious: Yes (Other)
  Sender: FDA-Public Use
  Company Number: CH-JNJFOC-20080306918

PATIENT
  Age: 27 Year
  Sex: Female

DRUGS (8)
  1. TOPAMAX MIGRANE [Suspect]
     Route: 048
  2. TOPAMAX MIGRANE [Suspect]
     Indication: MIGRAINE PROPHYLAXIS
     Route: 048
  3. CELEBREX [Concomitant]
     Indication: PAIN
     Route: 048
  4. MYDOCALM [Concomitant]
     Indication: PAIN
     Route: 048
  5. PALLADON [Concomitant]
     Indication: PAIN
     Route: 048
  6. SEROPRAM [Concomitant]
     Indication: DRUG USE FOR UNKNOWN INDICATION
     Route: 048
  7. MOVICOL [Concomitant]
     Indication: CONSTIPATION
     Route: 048
  8. LYRICA [Concomitant]
     Indication: PAIN
     Route: 065

REACTIONS (1)
  - VISUAL DISTURBANCE [None]
